FAERS Safety Report 19442418 (Version 2)
Quarter: 2021Q3

REPORT INFORMATION
  Report Type: Other
  Country: US (occurrence: US)
  Receive Date: 20210621
  Receipt Date: 20210921
  Transmission Date: 20211014
  Serious: No
  Sender: FDA-Public Use
  Company Number: US-ACORDA-ACO_169397_2021

PATIENT
  Age: 64 Year
  Sex: Female

DRUGS (8)
  1. INBRIJA [Suspect]
     Active Substance: LEVODOPA
     Indication: PARKINSON^S DISEASE
     Dosage: 2 CAPSULES, PRN; NOT TO EXCEED 5 DOSES A DAY
     Dates: start: 20210603
  2. CLONAZEPAM. [Concomitant]
     Active Substance: CLONAZEPAM
     Indication: PRODUCT USED FOR UNKNOWN INDICATION
     Dosage: UNK
     Route: 065
  3. CARBIDOPA LEVODOPA [Suspect]
     Active Substance: CARBIDOPA\LEVODOPA
     Indication: PRODUCT USED FOR UNKNOWN INDICATION
     Dosage: 25/100 MG; 1.5 PILLS AT 8 AM, 2 PILLS 4 TIMES A DAY
     Route: 065
  4. CITALOPRAM [Concomitant]
     Active Substance: CITALOPRAM HYDROBROMIDE
     Indication: PRODUCT USED FOR UNKNOWN INDICATION
     Dosage: UNK
     Route: 065
  5. INBRIJA [Suspect]
     Active Substance: LEVODOPA
     Indication: ON AND OFF PHENOMENON
  6. ENTACAPONE. [Suspect]
     Active Substance: ENTACAPONE
     Indication: PRODUCT USED FOR UNKNOWN INDICATION
     Dosage: 200 MG. 1 PILL 5 TIMES A DAY
     Route: 065
  7. NEUPRO [Concomitant]
     Active Substance: ROTIGOTINE
     Indication: PRODUCT USED FOR UNKNOWN INDICATION
     Dosage: UNK
     Route: 065
  8. CARBIDOPA LEVODOPA [Suspect]
     Active Substance: CARBIDOPA\LEVODOPA
     Dosage: ER 50/200 MG; 1 PILL AT NIGHT
     Route: 065

REACTIONS (11)
  - Choking [Not Recovered/Not Resolved]
  - Device difficult to use [Unknown]
  - Headache [Not Recovered/Not Resolved]
  - Device occlusion [Unknown]
  - Device defective [Unknown]
  - Product physical issue [Unknown]
  - On and off phenomenon [Not Recovered/Not Resolved]
  - Device issue [Unknown]
  - Cough [Not Recovered/Not Resolved]
  - Therapeutic product effect delayed [Unknown]
  - Dyskinesia [Not Recovered/Not Resolved]

NARRATIVE: CASE EVENT DATE: 20210610
